FAERS Safety Report 20802655 (Version 1)
Quarter: 2022Q2

REPORT INFORMATION
  Report Type: Spontaneous
  Country: US (occurrence: None)
  Receive Date: 20220509
  Receipt Date: 20220509
  Transmission Date: 20220721
  Serious: No
  Sender: FDA-Public Use
  Company Number: None

PATIENT
  Sex: Female

DRUGS (1)
  1. HUMIRA [Suspect]
     Active Substance: ADALIMUMAB
     Indication: Crohn^s disease
     Dosage: 40 MG EVERY 2 WEEKS SUBCUTANEOUS?
     Route: 058
     Dates: start: 2019

REACTIONS (3)
  - Skin disorder [None]
  - Skin cancer [None]
  - Recurrent cancer [None]
